FAERS Safety Report 5118833-5 (Version None)
Quarter: 2006Q3

REPORT INFORMATION
  Report Type: 
  Country: None (occurrence: None)
  Receive Date: 20060927
  Receipt Date: 20060918
  Transmission Date: 20061208
  Serious: Yes (Other)
  Sender: FDA-Public Use
  Company Number: TPA2006A01617

PATIENT
  Age: 82 Year
  Sex: Female
  Weight: 68.0396 kg

DRUGS (12)
  1. ACTOS [Suspect]
     Indication: DIABETES MELLITUS NON-INSULIN-DEPENDENT
     Dosage: 30 MG, 1 IN 1 D, PER ORAL
     Route: 048
     Dates: start: 20040918
  2. HUMULIN N [Concomitant]
  3. ASPIRIN [Concomitant]
  4. BENICAR [Concomitant]
  5. LASIX [Concomitant]
  6. PREMARIN [Concomitant]
  7. ZETIA [Concomitant]
  8. FOLIC ACID (FOLIC ACID) (400 MILLIGRAM) [Concomitant]
  9. CORAL CALCIUM (ERGOCALCIFEROL, CALCIUM) [Concomitant]
  10. OMEGA 3 (FISH OIL) [Concomitant]
  11. FISH OIL (FISH OIL) [Concomitant]
  12. FENOPROFEN (FENOPROFEN) [Concomitant]

REACTIONS (10)
  - BACK DISORDER [None]
  - BACK PAIN [None]
  - CATARACT [None]
  - FALL [None]
  - NAIL DISORDER [None]
  - ONYCHOCLASIS [None]
  - PRURITUS [None]
  - RIB FRACTURE [None]
  - SALIVARY GLAND CALCULUS [None]
  - SIALOADENITIS [None]
